FAERS Safety Report 5251702-9 (Version None)
Quarter: 2007Q1

REPORT INFORMATION
  Report Type: 
  Country: None (occurrence: None)
  Receive Date: 20070228
  Receipt Date: 20061017
  Transmission Date: 20070707
  Serious: No
  Sender: FDA-Public Use
  Company Number: US-GLAXOSMITHKLINE-A0623886A

PATIENT
  Age: 47 Year
  Sex: Male

DRUGS (6)
  1. LAMICTAL [Suspect]
     Indication: MAJOR DEPRESSION
     Dosage: 200MG TWICE PER DAY
     Route: 048
     Dates: start: 20051201
  2. PAXIL [Suspect]
     Indication: MAJOR DEPRESSION
     Route: 048
     Dates: start: 20040101, end: 20040101
  3. WELLBUTRIN XL [Suspect]
     Indication: DEPRESSION
     Route: 048
     Dates: start: 20050101
  4. MULTI-VITAMIN [Concomitant]
  5. FLONASE [Concomitant]
  6. ALZAPAM [Concomitant]

REACTIONS (5)
  - COORDINATION ABNORMAL [None]
  - DRUG INEFFECTIVE [None]
  - DRY MOUTH [None]
  - FATIGUE [None]
  - THERAPEUTIC RESPONSE UNEXPECTED [None]
